FAERS Safety Report 11445275 (Version 1)
Quarter: 2015Q3

REPORT INFORMATION
  Report Type: Spontaneous
  Country: US (occurrence: US)
  Receive Date: 20150902
  Receipt Date: 20150902
  Transmission Date: 20151125
  Serious: No
  Sender: FDA-Public Use
  Company Number: US-BIOGENIDEC-2015BI120198

PATIENT
  Sex: Female

DRUGS (12)
  1. AMPYRA [Concomitant]
     Active Substance: DALFAMPRIDINE
  2. ENABLEX [Concomitant]
     Active Substance: DARIFENACIN\DARIFENACIN HYDROBROMIDE
  3. MULTIVITAMIN [Concomitant]
     Active Substance: VITAMINS
  4. CALCIUM PLUS VIT D [Concomitant]
  5. IRON [Concomitant]
     Active Substance: IRON
  6. NURVIGIL [Concomitant]
  7. TECFIDERA [Suspect]
     Active Substance: DIMETHYL FUMARATE
     Indication: MULTIPLE SCLEROSIS
     Route: 048
     Dates: start: 20150805
  8. ASPIRIN. [Concomitant]
     Active Substance: ASPIRIN
  9. CRANBERRY. [Concomitant]
     Active Substance: CRANBERRY
  10. TYLENOL [Concomitant]
     Active Substance: ACETAMINOPHEN
  11. ALLERGY RELIEF [Concomitant]
  12. CITALOPRAM [Concomitant]
     Active Substance: CITALOPRAM HYDROBROMIDE

REACTIONS (1)
  - Swelling [Unknown]

NARRATIVE: CASE EVENT DATE: 2015
